FAERS Safety Report 5379322-6 (Version None)
Quarter: 2007Q3

REPORT INFORMATION
  Report Type: 
  Country: None (occurrence: None)
  Receive Date: 20070705
  Receipt Date: 20070626
  Transmission Date: 20080115
  Serious: Yes (Hospitalization)
  Sender: FDA-Public Use
  Company Number: DE-PFIZER INC-2007037172

PATIENT
  Sex: Female
  Weight: 63 kg

DRUGS (5)
  1. INSPRA [Suspect]
     Indication: CARDIAC FAILURE
     Dosage: DAILY DOSE:25MG
     Route: 048
  2. INSPRA [Suspect]
     Indication: MYOCARDIAL INFARCTION
  3. NEBILET [Suspect]
     Indication: MYOCARDIAL INFARCTION
     Dosage: TEXT:TOTAL DAILY DOSE 1 TABLET
     Route: 048
  4. CORDARONE [Suspect]
     Indication: MYOCARDIAL INFARCTION
     Dosage: DAILY DOSE:200MG
     Route: 048
     Dates: start: 20060501, end: 20070502
  5. SIMVASTATIN [Concomitant]

REACTIONS (2)
  - DEPRESSION [None]
  - GASTROINTESTINAL DISORDER [None]
